FAERS Safety Report 14705755 (Version 2)
Quarter: 2018Q2

REPORT INFORMATION
  Report Type: Spontaneous
  Country: US (occurrence: US)
  Receive Date: 20180402
  Receipt Date: 20180509
  Transmission Date: 20180711
  Serious: No
  Sender: FDA-Public Use
  Company Number: PHEH2018US012249

PATIENT
  Sex: Male

DRUGS (2)
  1. TELOTRISTAT ETHYL [Suspect]
     Active Substance: TELOTRISTAT ETHYL
     Indication: CARCINOID SYNDROME
     Dosage: 250 MG, TID
     Route: 048
  2. AFINITOR [Suspect]
     Active Substance: EVEROLIMUS
     Indication: CARCINOID SYNDROME
     Route: 065

REACTIONS (11)
  - Red blood cell count decreased [Unknown]
  - Haemoglobin decreased [Unknown]
  - Platelet count decreased [Unknown]
  - Blood glucose increased [Unknown]
  - Peripheral swelling [Unknown]
  - Protein total decreased [Unknown]
  - Oedema peripheral [Unknown]
  - Haematocrit decreased [Unknown]
  - Diarrhoea [Not Recovered/Not Resolved]
  - Liver disorder [Not Recovered/Not Resolved]
  - Joint swelling [Unknown]
